FAERS Safety Report 8238513-7 (Version None)
Quarter: 2012Q1

REPORT INFORMATION
  Report Type: 
  Country: None (occurrence: None)
  Receive Date: 20120327
  Receipt Date: 20120319
  Transmission Date: 20120608
  Serious: Yes (Other)
  Sender: FDA-Public Use
  Company Number: US-JNJFOC-20120305441

PATIENT
  Age: 63 Year
  Sex: Male

DRUGS (1)
  1. XARELTO [Suspect]
     Indication: KNEE ARTHROPLASTY
     Route: 048
     Dates: start: 20120101, end: 20120101

REACTIONS (1)
  - HAEMORRHAGE [None]
